FAERS Safety Report 4747759-1 (Version None)
Quarter: 2005Q3

REPORT INFORMATION
  Report Type: 
  Country: None (occurrence: None)
  Receive Date: 20050816
  Receipt Date: 20050805
  Transmission Date: 20060218
  Serious: Yes (Hospitalization, Other)
  Sender: FDA-Public Use
  Company Number: 2005113359

PATIENT
  Age: 51 Year
  Sex: Male

DRUGS (6)
  1. ATORVASTATIN CALCIUM [Suspect]
     Indication: HYPERCHOLESTEROLAEMIA
     Dosage: ORAL
     Route: 048
     Dates: start: 19870101
  2. ISOPHANE INSULIN (ISOPHANE INSULIN) [Concomitant]
  3. INSULIN-TORONTO (INSULIN ZINC SUSPENSION) [Concomitant]
  4. PANTOPRAZOLE SODIUM [Concomitant]
  5. ALTACE [Concomitant]
  6. CAVERJECT [Concomitant]

REACTIONS (1)
  - TRIPLE VESSEL BYPASS GRAFT [None]
